FAERS Safety Report 9057966 (Version 1)
Quarter: 2013Q1

REPORT INFORMATION
  Report Type: Spontaneous
  Country: IT (occurrence: IT)
  Receive Date: 20130210
  Receipt Date: 20130210
  Transmission Date: 20140127
  Serious: Yes (Other)
  Sender: FDA-Public Use
  Company Number: IT-TEVA-384839ISR

PATIENT
  Age: 73 None
  Sex: Female

DRUGS (4)
  1. CARBOPLATINO TEVA [Suspect]
     Indication: BREAST CANCER METASTATIC
     Dosage: 280MG CYCLICAL
     Route: 042
     Dates: start: 20130128, end: 20130128
  2. NEXIUM [Concomitant]
     Dosage: 40 MILLIGRAM DAILY;
  3. KYTRIL [Concomitant]
  4. SOLDESAM [Concomitant]

REACTIONS (4)
  - Throat irritation [Recovered/Resolved]
  - Throat tightness [Recovered/Resolved]
  - Flushing [Recovered/Resolved]
  - Swelling face [Recovered/Resolved]
